FAERS Safety Report 10036305 (Version 1)
Quarter: 2014Q1

REPORT INFORMATION
  Report Type: Spontaneous
  Country: US (occurrence: None)
  Receive Date: 20140306
  Receipt Date: 20140306
  Transmission Date: 20141002
  Serious: Yes (Life-Threatening, Hospitalization)
  Sender: FDA-Public Use
  Company Number: 163-21880-13011186

PATIENT
  Age: 58 Year
  Sex: Female

DRUGS (6)
  1. REVLIMID [Suspect]
     Indication: MYELODYSPLASTIC SYNDROME
     Route: 048
     Dates: start: 20120926, end: 20130108
  2. KCL (POTASSIUM CHLORIDE) [Concomitant]
  3. LEVOFLOXACIN (LEVOFLOXACIN) [Concomitant]
  4. PREDNISONE (PREDNISONE) [Concomitant]
  5. NOVOLOG (INSULIN ASPART) [Concomitant]
  6. ZOLPIDEM (ZOLPIDEM) [Concomitant]

REACTIONS (1)
  - Cerebrovascular accident [None]
